FAERS Safety Report 9798817 (Version 1)
Quarter: 2013Q4

REPORT INFORMATION
  Report Type: Spontaneous
  Country: GB (occurrence: None)
  Receive Date: 20131231
  Receipt Date: 20131231
  Transmission Date: 20140711
  Serious: Yes (Other)
  Sender: FDA-Public Use
  Company Number: AUR-APL-2013-10841

PATIENT
  Sex: Female

DRUGS (1)
  1. CITALOPRAM [Suspect]
     Indication: PRODUCT USED FOR UNKNOWN INDICATION
     Dosage: 80 MG, 1 IN 1 D, UNKNOWN
     Dates: start: 201306, end: 2013

REACTIONS (6)
  - Prescribed overdose [None]
  - Fatigue [None]
  - Flashback [None]
  - Lethargy [None]
  - Somnolence [None]
  - Activities of daily living impaired [None]
